FAERS Safety Report 4864213-7 (Version None)
Quarter: 2005Q4

REPORT INFORMATION
  Report Type: 
  Country: None (occurrence: None)
  Receive Date: 20051220
  Receipt Date: 20051220
  Transmission Date: 20060501
  Serious: Yes (Hospitalization)
  Sender: FDA-Public Use
  Company Number: None

PATIENT
  Sex: Female
  Weight: 64.2 kg

DRUGS (1)
  1. HEPARIN [Suspect]
     Indication: ANTIPHOSPHOLIPID SYNDROME
     Dosage: DRIP  CONTINOUS  IV DRIP
     Route: 041

REACTIONS (1)
  - HYPOTENSION [None]
